FAERS Safety Report 5627060-4 (Version None)
Quarter: 2008Q1

REPORT INFORMATION
  Report Type: 
  Country: None (occurrence: None)
  Receive Date: 20080116
  Receipt Date: 20070404
  Transmission Date: 20080703
  Serious: Yes (Life-Threatening)
  Sender: FDA-Public Use
  Company Number: BDI-009332

PATIENT
  Age: 83 Year
  Sex: Female

DRUGS (1)
  1. PROHANCE [Suspect]
     Indication: TRANSIENT ISCHAEMIC ATTACK
     Dosage: 20 ML ONCE IV
     Route: 042
     Dates: start: 20070330, end: 20070330

REACTIONS (5)
  - ANAPHYLACTIC REACTION [None]
  - DEPRESSED LEVEL OF CONSCIOUSNESS [None]
  - HYPOTONIA [None]
  - LOSS OF CONSCIOUSNESS [None]
  - URTICARIA [None]
